FAERS Safety Report 12930122 (Version 1)
Quarter: 2016Q4

REPORT INFORMATION
  Report Type: Spontaneous
  Country: US (occurrence: US)
  Receive Date: 20161110
  Receipt Date: 20161110
  Transmission Date: 20170207
  Serious: No
  Sender: FDA-Public Use
  Company Number: US-BAUSCH-BL-2016-023431

PATIENT
  Age: 21 Year
  Sex: Male
  Weight: 68.1 kg

DRUGS (3)
  1. PROPRANOLOL [Concomitant]
     Active Substance: PROPRANOLOL\PROPRANOLOL HYDROCHLORIDE
     Indication: HYPERTENSION
  2. MEPHYTON [Suspect]
     Active Substance: PHYTONADIONE
     Indication: CONGENITAL CYSTIC KIDNEY DISEASE
     Route: 065
  3. MEPHYTON [Suspect]
     Active Substance: PHYTONADIONE
     Indication: HEPATIC FIBROSIS

REACTIONS (3)
  - Abdominal discomfort [Not Recovered/Not Resolved]
  - Treatment noncompliance [Unknown]
  - Off label use [Unknown]
